FAERS Safety Report 8920001 (Version 2)
Quarter: 2013Q1

REPORT INFORMATION
  Report Type: Spontaneous
  Country: US (occurrence: US)
  Receive Date: 20121121
  Receipt Date: 20130103
  Transmission Date: 20140127
  Serious: No
  Sender: FDA-Public Use
  Company Number: US-PFIZER INC-2012290771

PATIENT
  Age: 65 Year
  Sex: Male
  Weight: 90.7 kg

DRUGS (8)
  1. LYRICA [Suspect]
     Indication: PARAESTHESIA
     Dosage: 50 MG, 3X/DAY (EVERY 8 HOURS)
     Route: 048
     Dates: start: 2012, end: 2012
  2. LYRICA [Suspect]
     Indication: NEUROPATHY PERIPHERAL
     Dosage: 100 MG, 3X/DAY
     Route: 048
     Dates: start: 20121114
  3. LYRICA [Suspect]
     Indication: DYSAESTHESIA
  4. GABAPENTIN [Suspect]
     Indication: PARAESTHESIA
     Dosage: UNK
     Dates: start: 2012, end: 2012
  5. RISPERDAL [Suspect]
     Indication: ANXIETY
     Dosage: 25 MG, 2X/DAY (5 AM IN THE MORNING AND 5 PM IN THE EVENING)
     Dates: start: 2012, end: 2012
  6. RISPERDAL [Suspect]
     Indication: AGITATION
     Dosage: 50 MG, DAILY (AT NIGHT)
     Dates: start: 2012
  7. RISPERDAL [Suspect]
     Indication: NERVOUSNESS
  8. VITAMIN E [Concomitant]
     Dosage: UNK

REACTIONS (5)
  - Paraesthesia [Unknown]
  - Drug ineffective [Unknown]
  - Corneal abrasion [Recovered/Resolved]
  - Vision blurred [Unknown]
  - Somnolence [Unknown]
